FAERS Safety Report 10073400 (Version 1)
Quarter: 2014Q2

REPORT INFORMATION
  Report Type: Spontaneous
  Country: BR (occurrence: BR)
  Receive Date: 20140411
  Receipt Date: 20140411
  Transmission Date: 20141212
  Serious: Yes (Life-Threatening, Hospitalization)
  Sender: FDA-Public Use
  Company Number: BR-BRISTOL-MYERS SQUIBB COMPANY-20588083

PATIENT
  Sex: Male

DRUGS (1)
  1. REYATAZ CAPS 300 MG [Suspect]
     Indication: HIV INFECTION
     Route: 048

REACTIONS (1)
  - HIV infection [Unknown]
